FAERS Safety Report 7245886-0 (Version None)
Quarter: 2011Q1

REPORT INFORMATION
  Report Type: 
  Country: None (occurrence: None)
  Receive Date: 20110126
  Receipt Date: 20110113
  Transmission Date: 20110831
  Serious: Yes (Death)
  Sender: FDA-Public Use
  Company Number: SE-ELI_LILLY_AND_COMPANY-SE201101003008

PATIENT
  Age: 50 Year
  Sex: Male

DRUGS (1)
  1. ZYPREXA [Suspect]

REACTIONS (1)
  - DEATH [None]
